FAERS Safety Report 7776437-X (Version None)
Quarter: 2011Q3

REPORT INFORMATION
  Report Type: 
  Country: None (occurrence: None)
  Receive Date: 20110926
  Receipt Date: 20110921
  Transmission Date: 20111222
  Serious: Yes (Hospitalization)
  Sender: FDA-Public Use
  Company Number: FR-PFIZER INC-2011223737

PATIENT
  Age: 89 Year
  Sex: Female

DRUGS (8)
  1. EFFEXOR XR [Suspect]
     Indication: DEPRESSION
     Dosage: 75 MG, 1X/DAY
     Route: 048
  2. ASPIRIN [Suspect]
     Indication: ARTERIAL DISORDER
     Dosage: 75 MG, 1X/DAY
     Route: 048
  3. ACETAMINOPHEN [Concomitant]
     Indication: PAIN
     Dosage: 4 G DAILY
     Route: 048
  4. PERINDOPRIL ERBUMINE [Concomitant]
     Indication: HYPERTENSION
     Dosage: 2.5 MG, 1X/DAY
     Route: 048
  5. NEXIUM [Concomitant]
     Indication: PROPHYLAXIS AGAINST GASTROINTESTINAL ULCER
     Dosage: 40 MG, 2X/DAY
     Route: 048
  6. DILTIAZEM HCL [Concomitant]
     Indication: HYPERTENSION
     Dosage: 200 MG, 1X/DAY
     Route: 048
  7. AMIODARONE [Concomitant]
     Indication: ARRHYTHMIA
     Dosage: 200 MG, 1X/DAY
     Route: 048
  8. EUROBIOL [Concomitant]
     Dosage: UNK
     Route: 048

REACTIONS (2)
  - DIVERTICULUM INTESTINAL [None]
  - RECTAL HAEMORRHAGE [None]
